FAERS Safety Report 7098243-4 (Version None)
Quarter: 2010Q4

REPORT INFORMATION
  Report Type: 
  Country: None (occurrence: None)
  Receive Date: 20101112
  Receipt Date: 20091111
  Transmission Date: 20110411
  Serious: No
  Sender: FDA-Public Use
  Company Number: US-KINGPHARMUSA00001-K200700458

PATIENT
  Sex: Male
  Weight: 68.481 kg

DRUGS (5)
  1. LEVOXYL [Suspect]
     Indication: HYPOTHYROIDISM
     Dosage: 50 MCG, QOD
     Route: 048
     Dates: start: 20070101
  2. LEVOXYL [Suspect]
     Dosage: 75 MCG, QD
     Route: 048
     Dates: start: 20060801, end: 20070101
  3. LEVOXYL [Suspect]
     Dosage: 25 MCG, 2-3X/WK
  4. XALATAN [Concomitant]
     Indication: GLAUCOMA
     Dosage: 1 DF, BIW
     Route: 047
  5. TIMOLOL MALEATE [Concomitant]
     Indication: GLAUCOMA
     Dosage: UNK
     Route: 047

REACTIONS (14)
  - ABDOMINAL PAIN UPPER [None]
  - ABNORMAL DREAMS [None]
  - CHILLS [None]
  - CONSTIPATION [None]
  - DRUG INEFFECTIVE [None]
  - DYSPEPSIA [None]
  - ERUCTATION [None]
  - EYE DISORDER [None]
  - INSOMNIA [None]
  - INTESTINAL FUNCTIONAL DISORDER [None]
  - LETHARGY [None]
  - NERVOUSNESS [None]
  - SNEEZING [None]
  - WEIGHT DECREASED [None]
